FAERS Safety Report 23564745 (Version 2)
Quarter: 2025Q2

REPORT INFORMATION
  Report Type: Spontaneous
  Country: DK (occurrence: DK)
  Receive Date: 20240226
  Receipt Date: 20250513
  Transmission Date: 20250716
  Serious: Yes (Death, Hospitalization)
  Sender: TEVA
  Company Number: None

PATIENT
  Age: 78 Year
  Sex: Male

DRUGS (4)
  1. CIPROFLOXACIN [Suspect]
     Active Substance: CIPROFLOXACIN
     Indication: Wound infection
     Route: 065
     Dates: start: 2022
  2. PIPERACILLIN AND TAZOBACTAM [Suspect]
     Active Substance: PIPERACILLIN SODIUM\TAZOBACTAM SODIUM
     Indication: Wound infection
     Route: 042
     Dates: start: 2022
  3. PENICILLIN V POTASSIUM [Suspect]
     Active Substance: PENICILLIN V POTASSIUM
     Indication: Wound infection
     Dosage: STRENGTH: 800 MG
     Route: 065
     Dates: start: 20220106
  4. PENICILLIN V [Suspect]
     Active Substance: PENICILLIN V
     Indication: Wound infection
     Dosage: STRENGTH: 1 MILL. IE
     Route: 065
     Dates: start: 2022

REACTIONS (4)
  - Acute kidney injury [Fatal]
  - Sepsis [Fatal]
  - Delirium [Fatal]
  - Clostridium difficile infection [Fatal]

NARRATIVE: CASE EVENT DATE: 20220401
